FAERS Safety Report 4572474-7 (Version None)
Quarter: 2005Q1

REPORT INFORMATION
  Report Type: 
  Country: None (occurrence: None)
  Receive Date: 20050207
  Receipt Date: 20030113
  Transmission Date: 20050727
  Serious: Yes (Life-Threatening)
  Sender: FDA-Public Use
  Company Number: US-MERCK-0301USA01094

PATIENT
  Age: 55 Year
  Sex: Female
  Weight: 73 kg

DRUGS (16)
  1. VIOXX [Suspect]
     Indication: PAIN
     Route: 048
     Dates: start: 20000125, end: 20021004
  2. ACETAMINOPHEN AND HYDROCODONE BITARTRATE [Concomitant]
     Route: 065
     Dates: start: 19900101, end: 20030101
  3. WELLBUTRIN [Concomitant]
     Route: 048
  4. VALIUM [Concomitant]
     Indication: MUSCLE SPASMS
     Route: 048
     Dates: start: 19800101
  5. ESTRADIOL [Concomitant]
     Route: 048
  6. REMERON [Concomitant]
     Route: 048
  7. LOTENSIN [Concomitant]
     Route: 065
  8. EFFEXOR XR [Concomitant]
     Route: 048
  9. PRILOSEC [Concomitant]
     Route: 065
  10. ATACAND [Concomitant]
     Route: 065
  11. CELEXA [Concomitant]
     Route: 065
  12. IRON (UNSPECIFIED) [Concomitant]
     Route: 065
  13. DIAZEPAM [Concomitant]
     Route: 065
  14. CELEBREX [Concomitant]
     Route: 065
  15. PAXIL CR [Concomitant]
     Indication: ANXIETY
     Route: 048
     Dates: start: 20020730
  16. PAXIL CR [Concomitant]
     Indication: DEPRESSION
     Route: 048
     Dates: start: 20020730

REACTIONS (27)
  - ADVERSE EVENT [None]
  - ANAEMIA [None]
  - ATHEROSCLEROSIS [None]
  - BACK PAIN [None]
  - CYSTOCELE [None]
  - DEPRESSION [None]
  - FEELING DRUNK [None]
  - HEADACHE [None]
  - HEPATITIS [None]
  - HYPERTENSION [None]
  - LIVER DISORDER [None]
  - NAUSEA [None]
  - OSTEOPOROSIS [None]
  - PAIN IN EXTREMITY [None]
  - PELVIC PROLAPSE [None]
  - POLYMYALGIA RHEUMATICA [None]
  - POLYNEUROPATHY [None]
  - RECTOCELE [None]
  - RENAL FAILURE [None]
  - RHINITIS SEASONAL [None]
  - SINUSITIS [None]
  - SOMNOLENCE [None]
  - STRESS INCONTINENCE [None]
  - TONGUE DISORDER [None]
  - TREMOR [None]
  - VAGINITIS ATROPHIC [None]
  - WEIGHT INCREASED [None]
